FAERS Safety Report 5662439-6 (Version None)
Quarter: 2008Q1

REPORT INFORMATION
  Report Type: 
  Country: None (occurrence: None)
  Receive Date: 20080313
  Receipt Date: 20080311
  Transmission Date: 20080703
  Serious: Yes (Hospitalization)
  Sender: FDA-Public Use
  Company Number: ES-BAXTER-2008BH001602

PATIENT
  Age: 3 Year
  Sex: Female

DRUGS (9)
  1. EXTRANEAL [Suspect]
     Indication: PERITONEAL DIALYSIS
     Route: 033
     Dates: start: 20080115, end: 20080123
  2. PHYSIOSOL IN PLASTIC CONTAINER [Suspect]
     Indication: PERITONEAL DIALYSIS
     Route: 033
     Dates: start: 20080115
  3. RESINCALCIO [Concomitant]
  4. CALCIUM CARBONATE [Concomitant]
  5. ALFACALCIDOL [Concomitant]
  6. EPOGEN [Concomitant]
  7. LABETALOL HCL [Concomitant]
  8. AMLODIPINE [Concomitant]
  9. OMEPRAZOLE [Concomitant]

REACTIONS (1)
  - PERITONEAL LESION [None]
